FAERS Safety Report 23714843 (Version 4)
Quarter: 2024Q3

REPORT INFORMATION
  Report Type: Report from Study
  Country: ZA (occurrence: ZA)
  Receive Date: 20240406
  Receipt Date: 20240718
  Transmission Date: 20241017
  Serious: Yes (Disabling, Other)
  Sender: NOVARTIS
  Company Number: ZA-002147023-NVSC2024ZA058164

PATIENT
  Age: 54 Year
  Sex: Female

DRUGS (2)
  1. SIPONIMOD [Suspect]
     Active Substance: SIPONIMOD
     Indication: Multiple sclerosis
     Dosage: 2 MG, QD
     Route: 048
     Dates: start: 20220827
  2. SIPONIMOD [Suspect]
     Active Substance: SIPONIMOD
     Dosage: 2 DOSAGE FORM, QD (2 TABLETS IN ONE DAY)
     Route: 048

REACTIONS (3)
  - Expanded disability status scale score increased [Not Recovered/Not Resolved]
  - Asthenia [Recovered/Resolved]
  - Incorrect dose administered [Unknown]
